FAERS Safety Report 10155924 (Version 2)
Quarter: 2014Q2

REPORT INFORMATION
  Report Type: Report from Study
  Country: US (occurrence: US)
  Receive Date: 20140506
  Receipt Date: 20140605
  Transmission Date: 20141212
  Serious: Yes (Hospitalization)
  Sender: FDA-Public Use
  Company Number: PHEH2014US009055

PATIENT
  Age: 78 Year
  Sex: Male
  Weight: 77.11 kg

DRUGS (6)
  1. ZORTRESS [Suspect]
     Indication: RENAL TRANSPLANT
     Dosage: 0.75 MG, BID (TWICE A DAY)
     Route: 048
     Dates: start: 20120926
  2. CELLCEPT [Concomitant]
     Indication: RENAL TRANSPLANT
     Dosage: 750 MG (500MG IN THE MORNING AND 250MG IN THE AFTERNOON)
     Route: 048
     Dates: start: 20090519
  3. LOPRESSOR [Concomitant]
     Indication: HYPERTENSION
     Dosage: 25 MG, BID
     Route: 048
     Dates: start: 20090120
  4. LIPITOR [Concomitant]
     Indication: BLOOD CHOLESTEROL ABNORMAL
     Dosage: 40 MG, QD (AT BED TIME)
     Route: 048
     Dates: start: 20090120
  5. AMIODARONE [Concomitant]
     Indication: CARDIAC DISORDER
     Dosage: 200 MG, QD (AT THE MORNING)
     Dates: start: 20090120
  6. MEXILETINE [Concomitant]
     Indication: CARDIAC DISORDER
     Dosage: 200 MG, BID
     Route: 048
     Dates: start: 20130322

REACTIONS (1)
  - Pneumonia [Recovered/Resolved]
